FAERS Safety Report 9547107 (Version 1)
Quarter: 2013Q3

REPORT INFORMATION
  Report Type: Spontaneous
  Country: US (occurrence: None)
  Receive Date: 20130920
  Receipt Date: 20130920
  Transmission Date: 20140515
  Serious: Yes (Hospitalization)
  Sender: FDA-Public Use
  Company Number: UCM201309-000062

PATIENT
  Age: 50 Year
  Sex: Female

DRUGS (3)
  1. LAMOTRIGINE [Suspect]
     Indication: DEPRESSION
  2. CYCLOBENZAPRINE [Suspect]
     Indication: ANALGESIC THERAPY
  3. ESCITALOPRAM (ESCITALOPRAM0 (ESCITALOPRAM) [Concomitant]

REACTIONS (4)
  - Drug reaction with eosinophilia and systemic symptoms [None]
  - Drug interaction [None]
  - Viral infection [None]
  - Similar reaction on previous exposure to drug [None]
